FAERS Safety Report 15616289 (Version 1)
Quarter: 2018Q4

REPORT INFORMATION
  Report Type: Spontaneous
  Country: US (occurrence: US)
  Receive Date: 20181114
  Receipt Date: 20181114
  Transmission Date: 20190205
  Serious: Yes (Hospitalization, Other)
  Sender: FDA-Public Use
  Company Number: US-INCYTE CORPORATION-2018IN011550

PATIENT

DRUGS (1)
  1. JAKAFI [Suspect]
     Active Substance: RUXOLITINIB
     Indication: NON-HODGKIN^S LYMPHOMA
     Dosage: 5 MG, BID
     Route: 048
     Dates: start: 20181010

REACTIONS (4)
  - Fatigue [Unknown]
  - Subcutaneous abscess [Unknown]
  - Off label use [Unknown]
  - Bacteraemia [Unknown]

NARRATIVE: CASE EVENT DATE: 20181010
